FAERS Safety Report 13823309 (Version 2)
Quarter: 2017Q3

REPORT INFORMATION
  Report Type: Spontaneous
  Country: US (occurrence: US)
  Receive Date: 20170802
  Receipt Date: 20170830
  Transmission Date: 20171127
  Serious: Yes (Other)
  Sender: FDA-Public Use
  Company Number: US-ROCHE-1969039

PATIENT
  Age: 28 Year
  Sex: Female
  Weight: 55 kg

DRUGS (2)
  1. NORTRIPTYLINE [Concomitant]
     Active Substance: NORTRIPTYLINE
     Indication: MIGRAINE
     Dosage: EVERY BEDTIME
     Route: 048
  2. RITUXAN [Suspect]
     Active Substance: RITUXIMAB
     Indication: MULTIPLE SCLEROSIS
     Dosage: 2 CYCLES EVERY 6 MONTHS, 2 INFUSIONS 1 WEEK APART EVERY 6 MONTHS?THE SAME DOSE RECEIVED ON 22/JUL/20
     Route: 042
     Dates: start: 20150608, end: 20160721

REACTIONS (3)
  - Crohn^s disease [Recovered/Resolved with Sequelae]
  - Intentional product use issue [Unknown]
  - Off label use [Unknown]

NARRATIVE: CASE EVENT DATE: 201607
